FAERS Safety Report 9230625 (Version 2)
Quarter: 2013Q2

REPORT INFORMATION
  Report Type: Spontaneous
  Country: CN (occurrence: CN)
  Receive Date: 20130415
  Receipt Date: 20130419
  Transmission Date: 20140414
  Serious: Yes (Hospitalization)
  Sender: FDA-Public Use
  Company Number: CN-SANOFI-AVENTIS-2013SA036493

PATIENT
  Age: 68 Year
  Sex: Male

DRUGS (2)
  1. STILNOX [Suspect]
     Indication: INSOMNIA
     Route: 048
     Dates: start: 20130307, end: 20130307
  2. ASPIRIN [Concomitant]
     Route: 048

REACTIONS (4)
  - Haemorrhage [Recovered/Resolved]
  - Somnambulism [Recovered/Resolved]
  - Head injury [Unknown]
  - Headache [Not Recovered/Not Resolved]
